FAERS Safety Report 25857004 (Version 1)
Quarter: 2025Q3

REPORT INFORMATION
  Report Type: Spontaneous
  Country: KR (occurrence: KR)
  Receive Date: 20250929
  Receipt Date: 20250929
  Transmission Date: 20251021
  Serious: Yes (Other)
  Sender: EMD SERONO INC
  Company Number: KR-Merck Healthcare KGaA-2025048025

PATIENT
  Age: 47 Year
  Sex: Female

DRUGS (1)
  1. TEPMETKO [Suspect]
     Active Substance: TEPOTINIB HYDROCHLORIDE
     Indication: Lung adenocarcinoma

REACTIONS (6)
  - Cellulitis [Unknown]
  - Skin discolouration [Unknown]
  - Skin exfoliation [Unknown]
  - Peripheral coldness [Unknown]
  - Pain [Unknown]
  - Peripheral swelling [Unknown]
